FAERS Safety Report 7555802-X (Version None)
Quarter: 2011Q2

REPORT INFORMATION
  Report Type: 
  Country: None (occurrence: None)
  Receive Date: 20110618
  Receipt Date: 20110607
  Transmission Date: 20111010
  Serious: Yes (Death, Hospitalization, Disabling)
  Sender: FDA-Public Use
  Company Number: BR-BAYER-BR-2006-011658

PATIENT
  Age: 61 Year
  Sex: Male

DRUGS (3)
  1. BETASERON [Suspect]
     Dosage: BETAJECT
     Route: 058
     Dates: start: 20060101
  2. BETASERON [Suspect]
     Indication: MULTIPLE SCLEROSIS
     Dosage: 1 ML, EVERY 2D
     Route: 058
     Dates: start: 20060301
  3. ANTI-DIABETICS [Concomitant]
     Indication: DIABETES MELLITUS
     Route: 048
     Dates: start: 19990101

REACTIONS (13)
  - ERYTHEMA [None]
  - INJECTION SITE MASS [None]
  - FALL [None]
  - MUSCULAR WEAKNESS [None]
  - ASTHENIA [None]
  - OEDEMA PERIPHERAL [None]
  - FEELING ABNORMAL [None]
  - DEATH [None]
  - EATING DISORDER [None]
  - ABASIA [None]
  - SUTURE INSERTION [None]
  - HYPOAESTHESIA [None]
  - BEDRIDDEN [None]
